FAERS Safety Report 17524587 (Version 1)
Quarter: 2020Q1

REPORT INFORMATION
  Report Type: Spontaneous
  Country: US (occurrence: US)
  Receive Date: 20200310
  Receipt Date: 20200310
  Transmission Date: 20200409
  Serious: Yes (Hospitalization, Other)
  Sender: FDA-Public Use
  Company Number: None

PATIENT
  Age: 56 Year
  Sex: Female
  Weight: 110.25 kg

DRUGS (5)
  1. OXCARBAZEPINE. [Concomitant]
     Active Substance: OXCARBAZEPINE
  2. VAGUS NERVE STIMULATOR [Concomitant]
  3. VITAMIN C [Concomitant]
     Active Substance: ASCORBIC ACID
  4. ZONISAMIDE GENERIC FOR ZONEGRAN [Suspect]
     Active Substance: ZONISAMIDE
     Indication: EPILEPSY
     Dosage: ?          QUANTITY:4 CAPSULE(S);?
     Route: 048
     Dates: start: 20190628
  5. ONFI [Concomitant]
     Active Substance: CLOBAZAM

REACTIONS (12)
  - Asthenia [None]
  - Road traffic accident [None]
  - Taste disorder [None]
  - Loss of consciousness [None]
  - Fatigue [None]
  - Insomnia [None]
  - Musculoskeletal stiffness [None]
  - Gastrointestinal pain [None]
  - Nausea [None]
  - Urine output decreased [None]
  - Dizziness [None]
  - Dehydration [None]

NARRATIVE: CASE EVENT DATE: 20190629
